FAERS Safety Report 12738397 (Version 5)
Quarter: 2020Q4

REPORT INFORMATION
  Report Type: Spontaneous
  Country: US (occurrence: US)
  Receive Date: 20160913
  Receipt Date: 20201209
  Transmission Date: 20210113
  Serious: No
  Sender: FDA-Public Use
  Company Number: US-PFIZER INC-2016415559

PATIENT
  Age: 62 Year
  Sex: Female
  Weight: 54.43 kg

DRUGS (2)
  1. XALKORI [Suspect]
     Active Substance: CRIZOTINIB
     Indication: LUNG ADENOCARCINOMA
     Dosage: 200 MG, 2X/DAY
     Route: 048
     Dates: start: 201605
  2. PREDNISONE. [Suspect]
     Active Substance: PREDNISONE
     Indication: INFLAMMATION
     Dosage: 4 MG, 1X/DAY

REACTIONS (7)
  - Blood thyroid stimulating hormone decreased [Unknown]
  - Anaemia [Unknown]
  - Condition aggravated [Unknown]
  - Incontinence [Unknown]
  - Dysphagia [Unknown]
  - Monoclonal gammopathy [Unknown]
  - Therapeutic response unexpected [Unknown]

NARRATIVE: CASE EVENT DATE: 2016
